FAERS Safety Report 19119750 (Version 1)
Quarter: 2021Q2

REPORT INFORMATION
  Report Type: Report from Study
  Country: None (occurrence: BR)
  Receive Date: 20210412
  Receipt Date: 20210412
  Transmission Date: 20210717
  Serious: Yes (Disabling, Other)
  Sender: FDA-Public Use
  Company Number: BR-ABBVIE-21K-020-3849536-00

PATIENT
  Sex: Female
  Weight: 46 kg

DRUGS (4)
  1. HUMIRA [Suspect]
     Active Substance: ADALIMUMAB
     Indication: COLITIS ULCERATIVE
     Route: 058
  2. VENAFLON [Concomitant]
     Indication: VARICOSE VEIN
  3. HUMIRA [Suspect]
     Active Substance: ADALIMUMAB
     Indication: COLITIS ULCERATIVE
  4. VENAFLON [Concomitant]
     Indication: PAIN IN EXTREMITY

REACTIONS (18)
  - Intestinal mass [Unknown]
  - Dysstasia [Unknown]
  - Gait inability [Unknown]
  - Diabetes mellitus [Unknown]
  - Asthenia [Unknown]
  - Angiopathy [Unknown]
  - Colitis ulcerative [Unknown]
  - Hypoaesthesia [Unknown]
  - Skin ulcer [Unknown]
  - Pain in extremity [Not Recovered/Not Resolved]
  - Malaise [Unknown]
  - Hyperglycaemia [Unknown]
  - Hypertensive crisis [Unknown]
  - Infection [Unknown]
  - Infarction [Unknown]
  - Tremor [Unknown]
  - Haemorrhage [Unknown]
  - Cerebral disorder [Unknown]
